FAERS Safety Report 25100846 (Version 3)
Quarter: 2025Q2

REPORT INFORMATION
  Report Type: Spontaneous
  Country: US (occurrence: US)
  Receive Date: 20250320
  Receipt Date: 20250417
  Transmission Date: 20250716
  Serious: Yes (Other)
  Sender: BAUSCH AND LOMB
  Company Number: US-MLMSERVICE-20250311-PI439718-00152-5

PATIENT
  Age: 76 Year
  Sex: Female
  Weight: 64 kg

DRUGS (2)
  1. FLUOROURACIL [Suspect]
     Active Substance: FLUOROURACIL
     Indication: Squamous cell carcinoma
     Dosage: 7 TO 8 DAYS
     Route: 061
  2. CALCIPOTRIENE [Suspect]
     Active Substance: CALCIPOTRIENE
     Indication: Squamous cell carcinoma
     Route: 061

REACTIONS (3)
  - Paradoxical drug reaction [Recovered/Resolved]
  - Squamous cell carcinoma of skin [Recovered/Resolved]
  - Disease progression [Recovered/Resolved]

NARRATIVE: CASE EVENT DATE: 20210422
